FAERS Safety Report 9606713 (Version 2)
Quarter: 2014Q2

REPORT INFORMATION
  Report Type: Spontaneous
  Country: US (occurrence: US)
  Receive Date: 20131008
  Receipt Date: 20140519
  Transmission Date: 20141212
  Serious: No
  Sender: FDA-Public Use
  Company Number: US-AMGEN-USASP2013066387

PATIENT
  Age: 70 Year
  Sex: Female
  Weight: 67.57 kg

DRUGS (6)
  1. PROLIA [Suspect]
     Indication: OSTEOPOROSIS POSTMENOPAUSAL
     Dosage: 60 MG, Q6MO
     Route: 058
     Dates: start: 201205
  2. PROLIA [Suspect]
     Dosage: UNK
     Route: 065
  3. PROLIA [Suspect]
     Dosage: UNK
     Route: 065
  4. BONIVA [Concomitant]
     Dosage: UNK
     Dates: start: 201201
  5. LIPITOR [Concomitant]
  6. VITAMIN D                          /00107901/ [Concomitant]
     Dosage: 2000 IU, UNK

REACTIONS (1)
  - Calcinosis [Unknown]
